FAERS Safety Report 21486380 (Version 1)
Quarter: 2022Q4

REPORT INFORMATION
  Report Type: Spontaneous
  Country: US (occurrence: US)
  Receive Date: 20221020
  Receipt Date: 20221020
  Transmission Date: 20230112
  Serious: Yes (Other)
  Sender: FDA-Public Use
  Company Number: US-PFIZER INC-PV202200085916

PATIENT
  Age: 73 Year

DRUGS (2)
  1. EUCRISA [Suspect]
     Active Substance: CRISABOROLE
     Dosage: UNK
  2. ELIDEL [Suspect]
     Active Substance: PIMECROLIMUS
     Dosage: UNK

REACTIONS (1)
  - Drug dependence [Unknown]
